FAERS Safety Report 6555736-3 (Version None)
Quarter: 2010Q1

REPORT INFORMATION
  Report Type: 
  Country: None (occurrence: None)
  Receive Date: 20100128
  Receipt Date: 20100119
  Transmission Date: 20100710
  Serious: Yes (Other)
  Sender: FDA-Public Use
  Company Number: PHHY2010GB03896

PATIENT

DRUGS (1)
  1. AFINITOR [Suspect]

REACTIONS (2)
  - DISEASE PROGRESSION [None]
  - RENAL FAILURE [None]
